FAERS Safety Report 23119009 (Version 1)
Quarter: 2023Q4

REPORT INFORMATION
  Report Type: Spontaneous
  Country: CA (occurrence: CA)
  Receive Date: 20231028
  Receipt Date: 20231028
  Transmission Date: 20240110
  Serious: Yes (Death, Other)
  Sender: FDA-Public Use
  Company Number: CA-TEVA-2023-CA-2937307

PATIENT
  Age: 42 Year
  Sex: Male

DRUGS (15)
  1. VORTIOXETINE [Suspect]
     Active Substance: VORTIOXETINE
     Indication: Dopamine agonist withdrawal syndrome
     Dosage: UNK
     Route: 065
  2. VENLAFAXINE HYDROCHLORIDE [Suspect]
     Active Substance: VENLAFAXINE HYDROCHLORIDE
     Indication: Anxiety
     Dosage: UNK
     Route: 065
  3. VENLAFAXINE HYDROCHLORIDE [Suspect]
     Active Substance: VENLAFAXINE HYDROCHLORIDE
     Dosage: 150 MILLIGRAM, QD
     Route: 065
  4. RASAGILINE MESYLATE [Suspect]
     Active Substance: RASAGILINE MESYLATE
     Indication: Dopamine agonist withdrawal syndrome
     Dosage: 1 MILLIGRAM, QD
     Route: 065
  5. RASAGILINE MESYLATE [Suspect]
     Active Substance: RASAGILINE MESYLATE
     Indication: Parkinson^s disease
  6. BUPROPION [Suspect]
     Active Substance: BUPROPION
     Indication: Dopamine agonist withdrawal syndrome
     Dosage: 300 MILLIGRAM, QD
     Route: 065
  7. ROTIGOTINE [Suspect]
     Active Substance: ROTIGOTINE
     Indication: Parkinson^s disease
     Dosage: 2 MILLIGRAM, QD
     Route: 065
  8. ROTIGOTINE [Suspect]
     Active Substance: ROTIGOTINE
     Dosage: 4 MILLIGRAM, QD
     Route: 065
  9. ROTIGOTINE [Suspect]
     Active Substance: ROTIGOTINE
     Dosage: 8 MILLIGRAM, QD
     Route: 065
  10. ROTIGOTINE [Suspect]
     Active Substance: ROTIGOTINE
     Dosage: 6 MILLIGRAM, QD
     Route: 065
  11. ROTIGOTINE [Suspect]
     Active Substance: ROTIGOTINE
     Dosage: 4 MILLIGRAM, QD
     Route: 065
  12. ROTIGOTINE [Suspect]
     Active Substance: ROTIGOTINE
     Dosage: 2 MILLIGRAM, QD
     Route: 065
  13. CARBIDOPA\LEVODOPA [Suspect]
     Active Substance: CARBIDOPA\LEVODOPA
     Indication: Parkinson^s disease
     Dosage: UNK
     Route: 065
  14. CARBIDOPA\LEVODOPA [Suspect]
     Active Substance: CARBIDOPA\LEVODOPA
     Dosage: 25/100 MILLIGRAM, TID
     Route: 065
  15. CARBIDOPA\LEVODOPA [Suspect]
     Active Substance: CARBIDOPA\LEVODOPA
     Dosage: 25/100 MILLIGRAM, QID
     Route: 065

REACTIONS (4)
  - Completed suicide [Fatal]
  - Therapeutic product ineffective [Fatal]
  - Suicidal ideation [Fatal]
  - Product use in unapproved indication [Unknown]
